FAERS Safety Report 7386262-X (Version None)
Quarter: 2011Q1

REPORT INFORMATION
  Report Type: 
  Country: None (occurrence: None)
  Receive Date: 20110331
  Receipt Date: 20110324
  Transmission Date: 20110831
  Serious: Yes (Hospitalization)
  Sender: FDA-Public Use
  Company Number: US-B.I. PHARMACEUTICALS,INC./RIDGEFIELD-2011-BP-09084BP

PATIENT
  Age: 91 Year
  Sex: Female

DRUGS (5)
  1. XANAX [Concomitant]
     Indication: RESTLESS LEGS SYNDROME
     Route: 048
  2. XANAX [Concomitant]
     Indication: ANXIETY
  3. PRADAXA [Suspect]
     Dosage: 150 MG
     Route: 048
     Dates: start: 20110301
  4. APAP TAB [Concomitant]
     Indication: BACK PAIN
     Route: 048
  5. PRADAXA [Suspect]
     Indication: CARDIAC FAILURE CONGESTIVE
     Dosage: 150 MG
     Route: 048
     Dates: start: 20110217, end: 20110304

REACTIONS (2)
  - HAEMATOCHEZIA [None]
  - BLOOD SODIUM DECREASED [None]
